FAERS Safety Report 5925937-3 (Version None)
Quarter: 2008Q4

REPORT INFORMATION
  Report Type: 
  Country: None (occurrence: None)
  Receive Date: 20081021
  Receipt Date: 20081017
  Transmission Date: 20090506
  Serious: Yes (Other)
  Sender: FDA-Public Use
  Company Number: US-ROXANE LABORATORIES, INC.-2008-RO-00137RO

PATIENT
  Age: 18 Year
  Sex: Male

DRUGS (6)
  1. MERCAPTOPURINE [Suspect]
     Indication: INFLAMMATORY BOWEL DISEASE
     Dosage: 50MG
  2. CYSTEAMINE [Suspect]
     Indication: CYSTINOSIS
     Dosage: 2400MG
     Route: 048
  3. CYSTEAMINE [Suspect]
     Indication: FANCONI SYNDROME
  4. CYSTEAMINE [Suspect]
     Indication: CORNEAL DEPOSITS
  5. ELECTROLYTE REPLACEMENT [Suspect]
     Indication: CYSTINOSIS
  6. ELECTROLYTE REPLACEMENT [Suspect]
     Indication: FANCONI SYNDROME

REACTIONS (4)
  - CONDITION AGGRAVATED [None]
  - RENAL CELL CARCINOMA [None]
  - RENAL FAILURE [None]
  - RENAL FAILURE CHRONIC [None]
